FAERS Safety Report 20491582 (Version 2)
Quarter: 2022Q1

REPORT INFORMATION
  Report Type: Spontaneous
  Country: FR (occurrence: FR)
  Receive Date: 20220218
  Receipt Date: 20220301
  Transmission Date: 20220424
  Serious: Yes (Hospitalization)
  Sender: FDA-Public Use
  Company Number: FR-AMERICAN REGENT INC-2022000368

PATIENT
  Age: 86 Year
  Sex: Female

DRUGS (4)
  1. VENOFER [Suspect]
     Active Substance: IRON SUCROSE
     Indication: Iron deficiency anaemia
     Dosage: 300 MG
  2. VENOFER [Suspect]
     Active Substance: IRON SUCROSE
     Dosage: 300 MG
  3. VENOFER [Suspect]
     Active Substance: IRON SUCROSE
     Dosage: 300 MG
     Dates: start: 202111, end: 202111
  4. VISIPAQUE [Suspect]
     Active Substance: IODIXANOL
     Indication: Computerised tomogram
     Dosage: 140 MILLILITER
     Dates: start: 202111

REACTIONS (2)
  - Skin exfoliation [Unknown]
  - Acute kidney injury [Unknown]

NARRATIVE: CASE EVENT DATE: 20211124
